FAERS Safety Report 4541865-2 (Version None)
Quarter: 2004Q4

REPORT INFORMATION
  Report Type: 
  Country: None (occurrence: None)
  Receive Date: 20041230
  Receipt Date: 20041026
  Transmission Date: 20050328
  Serious: No
  Sender: FDA-Public Use
  Company Number: PHBS2004JP14373

PATIENT
  Age: 53 Year
  Sex: Male

DRUGS (1)
  1. NEORAL [Suspect]
     Indication: PSORIASIS
     Dosage: 150 MG/D
     Route: 048
     Dates: start: 20040301, end: 20040101

REACTIONS (1)
  - HYPOAESTHESIA [None]
